FAERS Safety Report 9128171 (Version 1)
Quarter: 2013Q1

REPORT INFORMATION
  Report Type: Spontaneous
  Country: AU (occurrence: AU)
  Receive Date: 20130125
  Receipt Date: 20130125
  Transmission Date: 20140127
  Serious: Yes (Hospitalization)
  Sender: FDA-Public Use
  Company Number: AU-ASTRAZENECA-2013SE04687

PATIENT
  Age: 28191 Day
  Sex: Male

DRUGS (7)
  1. CRESTOR [Suspect]
     Route: 048
  2. ASPIRIN [Suspect]
     Route: 065
  3. CLOPIDOGREL [Suspect]
     Route: 048
  4. CARVEDILOL HYDROCHLORIDE [Suspect]
     Route: 065
  5. PERINDOPRIL [Suspect]
     Route: 065
  6. XARELTO [Suspect]
     Indication: ATRIAL FIBRILLATION
     Route: 048
     Dates: start: 20120704
  7. XARELTO [Suspect]
     Indication: ATRIAL FIBRILLATION
     Route: 048

REACTIONS (8)
  - Dyspnoea exertional [Unknown]
  - Orthopnoea [Unknown]
  - Left ventricular dysfunction [Unknown]
  - Ejection fraction decreased [Unknown]
  - Pulmonary oedema [Unknown]
  - Renal impairment [Unknown]
  - Glomerular filtration rate decreased [Unknown]
  - Blood creatinine increased [Unknown]
